FAERS Safety Report 7289316-1 (Version None)
Quarter: 2011Q1

REPORT INFORMATION
  Report Type: 
  Country: None (occurrence: None)
  Receive Date: 20110211
  Receipt Date: 20110209
  Transmission Date: 20110831
  Serious: Yes (Hospitalization)
  Sender: FDA-Public Use
  Company Number: JP-ABBOTT-11P-087-0700393-00

PATIENT
  Age: 82 Year
  Sex: Male
  Weight: 62.7 kg

DRUGS (3)
  1. LEUPLIN FOR INJECTION 3.75 MG [Suspect]
     Indication: PROSTATE CANCER
     Route: 058
     Dates: start: 20101208, end: 20110105
  2. BICALUTAMIDE [Suspect]
     Indication: PROSTATE CANCER
     Dosage: 80MG (80 MG, 1 IN 1 D)
     Route: 048
     Dates: start: 20101124, end: 20110115
  3. CASODEX [Concomitant]
     Indication: PRODUCT USED FOR UNKNOWN INDICATION
     Route: 048

REACTIONS (1)
  - INTERSTITIAL LUNG DISEASE [None]
